FAERS Safety Report 12123136 (Version 1)
Quarter: 2016Q1

REPORT INFORMATION
  Report Type: Spontaneous
  Country: GB (occurrence: GB)
  Receive Date: 20160227
  Receipt Date: 20160227
  Transmission Date: 20160526
  Serious: Yes (Death, Other)
  Sender: FDA-Public Use
  Company Number: GB-AUROBINDO-AUR-APL-2016-01842

PATIENT
  Sex: Female

DRUGS (6)
  1. VIRAMUNE [Suspect]
     Active Substance: NEVIRAPINE
     Dosage: 200 MG, UNK
     Route: 064
  2. ZIDOVUDINE. [Suspect]
     Active Substance: ZIDOVUDINE
     Dosage: UNK
     Route: 064
  3. DIDANOSINE. [Suspect]
     Active Substance: DIDANOSINE
     Indication: PRODUCT USED FOR UNKNOWN INDICATION
     Dosage: UNK
     Route: 064
  4. DIDANOSINE. [Suspect]
     Active Substance: DIDANOSINE
     Dosage: UNK
     Route: 064
  5. VIRAMUNE [Suspect]
     Active Substance: NEVIRAPINE
     Indication: PRODUCT USED FOR UNKNOWN INDICATION
     Dosage: 200 MG, UNK
     Route: 064
  6. ZIDOVUDINE. [Suspect]
     Active Substance: ZIDOVUDINE
     Indication: PRODUCT USED FOR UNKNOWN INDICATION
     Dosage: UNK
     Route: 064

REACTIONS (2)
  - Foetal exposure during pregnancy [Unknown]
  - Sudden infant death syndrome [Fatal]
